FAERS Safety Report 6946040-X (Version None)
Quarter: 2010Q3

REPORT INFORMATION
  Report Type: 
  Country: None (occurrence: None)
  Receive Date: 20100827
  Receipt Date: 20090715
  Transmission Date: 20110219
  Serious: No
  Sender: FDA-Public Use
  Company Number: A0797103A

PATIENT
  Sex: Male

DRUGS (2)
  1. ACYCLOVIR SODIUM [Suspect]
     Route: 048
     Dates: end: 20090714
  2. UNKNOWN [Concomitant]

REACTIONS (1)
  - RASH [None]
